FAERS Safety Report 7457049-4 (Version None)
Quarter: 2011Q2

REPORT INFORMATION
  Report Type: 
  Country: None (occurrence: None)
  Receive Date: 20110504
  Receipt Date: 20110419
  Transmission Date: 20111010
  Serious: Yes (Life-Threatening, Hospitalization, Other)
  Sender: FDA-Public Use
  Company Number: US-JNJFOC-20110411243

PATIENT
  Age: 31 Year
  Sex: Male

DRUGS (6)
  1. SELECTIVE SEROTONIN REUPTAKE INHIBITORS [Concomitant]
     Route: 065
  2. PHENCYCLIDINE [Suspect]
     Indication: PRODUCT USED FOR UNKNOWN INDICATION
     Route: 065
  3. PSYCHOSTIMULANTS [Concomitant]
     Route: 065
  4. OTC MEDICATIONS [Concomitant]
     Indication: NAUSEA
     Route: 065
  5. ACETAMINOPHEN [Concomitant]
     Route: 065
  6. ULTRAM [Suspect]
     Indication: JOINT INJURY
     Dosage: 90 TABLETS OF 50MG
     Route: 048

REACTIONS (6)
  - SINUS TACHYCARDIA [None]
  - NAUSEA [None]
  - CONVULSION [None]
  - MULTIPLE DRUG OVERDOSE [None]
  - RESPIRATORY RATE DECREASED [None]
  - SOMNOLENCE [None]
